FAERS Safety Report 6209477-2 (Version None)
Quarter: 2009Q2

REPORT INFORMATION
  Report Type: 
  Country: None (occurrence: None)
  Receive Date: 20090601
  Receipt Date: 20090223
  Transmission Date: 20091009
  Serious: No
  Sender: FDA-Public Use
  Company Number: A0770006A

PATIENT
  Age: 37 Year
  Sex: Female

DRUGS (6)
  1. AUGMENTIN XR [Suspect]
     Indication: SINUSITIS
     Dosage: 2TAB TWICE PER DAY
     Route: 048
     Dates: start: 20090202, end: 20090211
  2. SINGULAIR [Concomitant]
  3. ASMANEX TWISTHALER [Concomitant]
  4. FLUTICASONE PROPIONATE [Concomitant]
  5. MUCINEX DM [Concomitant]
  6. FEXOFENADINE [Concomitant]

REACTIONS (5)
  - ANXIETY [None]
  - DYSPNOEA [None]
  - HEART RATE INCREASED [None]
  - INSOMNIA [None]
  - PALPITATIONS [None]
